FAERS Safety Report 19180617 (Version 1)
Quarter: 2021Q2

REPORT INFORMATION
  Report Type: Report from Study
  Country: PT (occurrence: PT)
  Receive Date: 20210426
  Receipt Date: 20210426
  Transmission Date: 20210717
  Serious: Yes (Other)
  Sender: FDA-Public Use
  Company Number: NVSC2021PT087004

PATIENT
  Sex: Male
  Weight: 67 kg

DRUGS (1)
  1. ENTRESTO [Suspect]
     Active Substance: SACUBITRIL\VALSARTAN
     Indication: CARDIAC FAILURE
     Dosage: 200 MG, BID, (97/103MG)
     Route: 048
     Dates: start: 20201201

REACTIONS (2)
  - Presyncope [Recovered/Resolved]
  - Dizziness [Recovered/Resolved]
